FAERS Safety Report 5253800-2 (Version None)
Quarter: 2007Q1

REPORT INFORMATION
  Report Type: 
  Country: None (occurrence: None)
  Receive Date: 20070301
  Receipt Date: 20070221
  Transmission Date: 20070707
  Serious: Yes (Other)
  Sender: FDA-Public Use
  Company Number: DE-ABBOTT-07P-062-0360003-00

PATIENT

DRUGS (2)
  1. HUMIRA [Suspect]
     Indication: PSORIATIC ARTHROPATHY
     Route: 058
     Dates: start: 20051001, end: 20061001
  2. HUMIRA [Suspect]
     Route: 058

REACTIONS (2)
  - EPILEPSY [None]
  - PERONEAL NERVE PALSY [None]
